FAERS Safety Report 24890732 (Version 1)
Quarter: 2025Q1

REPORT INFORMATION
  Report Type: Report from Study
  Country: US (occurrence: US)
  Receive Date: 20250127
  Receipt Date: 20250127
  Transmission Date: 20250409
  Serious: Yes (Death)
  Sender: TAKEDA
  Company Number: US-TAKEDA-2024TUS108033

PATIENT
  Sex: Male

DRUGS (1)
  1. MARIBAVIR [Suspect]
     Active Substance: MARIBAVIR
     Indication: Cytomegalovirus infection
     Dosage: 400 MILLIGRAM, BID
     Dates: start: 20241020, end: 20241108

REACTIONS (3)
  - Musculoskeletal disorder [Fatal]
  - Frequent bowel movements [Unknown]
  - Taste disorder [Unknown]
